FAERS Safety Report 9277298 (Version 1)
Quarter: 2013Q2

REPORT INFORMATION
  Report Type: Spontaneous
  Country: US (occurrence: None)
  Receive Date: 20130502
  Receipt Date: 20130502
  Transmission Date: 20140414
  Serious: No
  Sender: FDA-Public Use
  Company Number: None

PATIENT
  Age: 30 Year
  Sex: Female

DRUGS (2)
  1. MAKENA [Suspect]
     Route: 030
  2. MAKENA [Suspect]
     Indication: UTERINE DISORDER
     Route: 030

REACTIONS (7)
  - Injection site pain [None]
  - Injection site rash [None]
  - Urticaria [None]
  - Swelling face [None]
  - Lip swelling [None]
  - Swollen tongue [None]
  - Pharyngeal oedema [None]
